FAERS Safety Report 10791899 (Version 1)
Quarter: 2015Q1

REPORT INFORMATION
  Report Type: Spontaneous
  Country: GB (occurrence: GB)
  Receive Date: 20150213
  Receipt Date: 20150213
  Transmission Date: 20150721
  Serious: Yes (Other)
  Sender: FDA-Public Use
  Company Number: GB-TEVA-539318ISR

PATIENT
  Age: 62 Year
  Sex: Female
  Weight: 78 kg

DRUGS (15)
  1. FOLIC ACID. [Concomitant]
     Active Substance: FOLIC ACID
     Dates: start: 20141009
  2. MIRTAZAPINE. [Concomitant]
     Active Substance: MIRTAZAPINE
     Dates: start: 20141009
  3. ALENDRONIC ACID [Concomitant]
     Active Substance: ALENDRONIC ACID
     Dates: start: 20141009
  4. AMOXICILLIN. [Concomitant]
     Active Substance: AMOXICILLIN
     Dates: start: 20141219, end: 20141230
  5. RANITIDINE [Concomitant]
     Active Substance: RANITIDINE\RANITIDINE HYDROCHLORIDE
     Dates: start: 20141009
  6. CODEINE PHOSPHATE [Concomitant]
     Active Substance: CODEINE PHOSPHATE
     Dates: start: 20141009
  7. COLECALCIFEROL [Concomitant]
     Active Substance: CHOLECALCIFEROL
     Dates: start: 20141009
  8. DENOSUMAB [Concomitant]
     Active Substance: DENOSUMAB
     Dates: start: 20130812
  9. PARACETAMOL [Concomitant]
     Active Substance: ACETAMINOPHEN
     Dates: start: 20141009
  10. NITROFURANTOIN. [Suspect]
     Active Substance: NITROFURANTOIN
     Route: 048
     Dates: start: 20150119
  11. NAPROXEN. [Concomitant]
     Active Substance: NAPROXEN
     Dates: start: 20141202, end: 20141212
  12. ZOPICLONE [Concomitant]
     Active Substance: ZOPICLONE
     Dates: start: 20141009, end: 20141106
  13. GAVISCON [Concomitant]
     Active Substance: ALUMINUM HYDROXIDE\MAGNESIUM CARBONATE
     Dates: start: 20141014, end: 20150119
  14. THIAMINE [Concomitant]
     Active Substance: THIAMINE
     Dates: start: 20141009
  15. TRIMETHOPRIM. [Concomitant]
     Active Substance: TRIMETHOPRIM
     Dates: start: 20150112, end: 20150119

REACTIONS (5)
  - Tenderness [Unknown]
  - Paraesthesia [Unknown]
  - Hypersensitivity [Unknown]
  - Peripheral sensory neuropathy [Recovered/Resolved]
  - Pain [Unknown]

NARRATIVE: CASE EVENT DATE: 20150120
